FAERS Safety Report 10144231 (Version 9)
Quarter: 2016Q2

REPORT INFORMATION
  Report Type: Report from Study
  Country: US (occurrence: US)
  Receive Date: 20140430
  Receipt Date: 20160509
  Transmission Date: 20160815
  Serious: Yes (Hospitalization, Other)
  Sender: FDA-Public Use
  Company Number: US-ACTELION-A-NJ2014-97948

PATIENT
  Age: 82 Year
  Sex: Female

DRUGS (2)
  1. ADCIRCA [Concomitant]
     Active Substance: TADALAFIL
  2. MACITENTAN [Suspect]
     Active Substance: MACITENTAN
     Indication: PULMONARY ARTERIAL HYPERTENSION
     Dosage: 10 MG, QD
     Route: 048
     Dates: start: 20131213

REACTIONS (5)
  - Pneumonia [Unknown]
  - Arthritis [Unknown]
  - Hip arthroplasty [Recovered/Resolved]
  - Hip surgery [Recovered/Resolved]
  - Breast cancer [Unknown]
